FAERS Safety Report 8360111-5 (Version None)
Quarter: 2012Q2

REPORT INFORMATION
  Report Type: 
  Country: None (occurrence: None)
  Receive Date: 20120515
  Receipt Date: 20110613
  Transmission Date: 20120825
  Serious: No
  Sender: FDA-Public Use
  Company Number: US-ALEXION-A201100857

PATIENT
  Sex: Female

DRUGS (2)
  1. SOLIRIS [Suspect]
     Indication: PAROXYSMAL NOCTURNAL HAEMOGLOBINURIA
     Dosage: 600 MG, QW
     Route: 042
     Dates: start: 20110610
  2. FOSAMAX [Concomitant]
     Dosage: UNK
     Dates: end: 20110701

REACTIONS (15)
  - DIZZINESS [None]
  - HEADACHE [None]
  - SLUGGISHNESS [None]
  - PLATELET COUNT DECREASED [None]
  - PALPITATIONS [None]
  - URTICARIA [None]
  - BLOOD IRON INCREASED [None]
  - HAEMOGLOBIN DECREASED [None]
  - JOINT SWELLING [None]
  - ASTHENIA [None]
  - STRESS [None]
  - BLOOD PRESSURE INCREASED [None]
  - WHITE BLOOD CELL COUNT DECREASED [None]
  - DIARRHOEA [None]
  - CONTUSION [None]
